FAERS Safety Report 8833164 (Version 1)
Quarter: 2012Q4

REPORT INFORMATION
  Report Type: 
  Country: AU (occurrence: AU)
  Receive Date: 20121010
  Receipt Date: 20121010
  Transmission Date: 20130627
  Serious: Yes (Other)
  Sender: FDA-Public Use
  Company Number: PHHY2012AU084416

PATIENT
  Age: 70 Year
  Sex: Female
  Weight: 57 kg

DRUGS (4)
  1. ESTRADERM MX [Suspect]
     Dosage: 100 mcg, UNK
     Route: 062
     Dates: start: 20120619
  2. AURORIX [Concomitant]
     Indication: ANXIETY
     Dosage: 300 mg, daily
     Dates: start: 2005
  3. LIPITOR [Concomitant]
     Indication: HYPERLIPIDAEMIA
     Dosage: 20 mg, daily
     Dates: start: 2007
  4. XANAX [Concomitant]
     Indication: PANIC DISORDER
     Dosage: 0.5 mg, QID
     Dates: start: 2005

REACTIONS (4)
  - Dermatitis bullous [Recovered/Resolved]
  - Rash [Recovered/Resolved]
  - Scab [Recovered/Resolved]
  - Urticaria [Recovered/Resolved]
